FAERS Safety Report 5353108-0 (Version None)
Quarter: 2007Q2

REPORT INFORMATION
  Report Type: 
  Country: None (occurrence: None)
  Receive Date: 20070607
  Receipt Date: 20070507
  Transmission Date: 20071010
  Serious: Yes (Other)
  Sender: FDA-Public Use
  Company Number: 6033100

PATIENT
  Age: 53 Year
  Sex: Female

DRUGS (1)
  1. ETOPOSIDE [Suspect]
     Indication: BREAST CANCER
     Dosage: 50 MG (50 MG,1 IN 1 D)
     Route: 048

REACTIONS (4)
  - ABDOMINAL DISTENSION [None]
  - FLATULENCE [None]
  - LARGE INTESTINAL ULCER [None]
  - PNEUMATOSIS INTESTINALIS [None]
